FAERS Safety Report 17944030 (Version 12)
Quarter: 2020Q4

REPORT INFORMATION
  Report Type: Report from Study
  Country: DE (occurrence: DE)
  Receive Date: 20200625
  Receipt Date: 20201216
  Transmission Date: 20210113
  Serious: Yes (Hospitalization, Other)
  Sender: FDA-Public Use
  Company Number: DE-SHIRE-DE202020303

PATIENT
  Age: 10 Month
  Sex: Female

DRUGS (6)
  1. HUMAN NORMAL IMMUNOGLOBULIN; LIQUID 20 [Suspect]
     Active Substance: HUMAN IMMUNOGLOBULIN G
     Dosage: 3 GRAM, EVERY 3 WK
     Route: 058
     Dates: start: 20200708
  2. HUMAN NORMAL IMMUNOGLOBULIN; LIQUID 20 [Suspect]
     Active Substance: HUMAN IMMUNOGLOBULIN G
     Dosage: 3 GRAM, EVERY 3 WK
     Route: 058
     Dates: start: 20200604
  3. HUMAN NORMAL IMMUNOGLOBULIN; LIQUID 20 [Suspect]
     Active Substance: HUMAN IMMUNOGLOBULIN G
     Dosage: 2 GRAM, 1X/WEEK
     Route: 058
     Dates: start: 20200812, end: 20200812
  4. HUMAN NORMAL IMMUNOGLOBULIN; LIQUID 20 [Suspect]
     Active Substance: HUMAN IMMUNOGLOBULIN G
     Dosage: 2 GRAM, 1X/WEEK
     Route: 058
     Dates: start: 20201005, end: 20201005
  5. HUMAN NORMAL IMMUNOGLOBULIN; LIQUID 20 [Suspect]
     Active Substance: HUMAN IMMUNOGLOBULIN G
     Indication: SECONDARY IMMUNODEFICIENCY
     Dosage: UNK
     Route: 065
     Dates: start: 20200522
  6. HUMAN NORMAL IMMUNOGLOBULIN; LIQUID 20 [Suspect]
     Active Substance: HUMAN IMMUNOGLOBULIN G
     Indication: HYPOGAMMAGLOBULINAEMIA
     Dosage: 2 GRAM, EVERY 3 WK
     Route: 058
     Dates: start: 20200604, end: 20200604

REACTIONS (2)
  - Inguinal hernia [Unknown]
  - Blood immunoglobulin G decreased [Recovered/Resolved]

NARRATIVE: CASE EVENT DATE: 20200619
